FAERS Safety Report 23587991 (Version 1)
Quarter: 2024Q1

REPORT INFORMATION
  Report Type: Spontaneous
  Country: US (occurrence: US)
  Receive Date: 20240301
  Receipt Date: 20240301
  Transmission Date: 20240410
  Serious: No
  Sender: FDA-Public Use
  Company Number: US-VIIV HEALTHCARE LIMITED-US2024022621

PATIENT
  Age: 65 Year
  Sex: Male

DRUGS (2)
  1. RILPIVIRINE [Suspect]
     Active Substance: RILPIVIRINE
     Indication: Product used for unknown indication
     Dosage: UNK
     Route: 065
  2. CABOTEGRAVIR [Suspect]
     Active Substance: CABOTEGRAVIR
     Indication: Product used for unknown indication
     Dosage: UNK
     Route: 065

REACTIONS (6)
  - Injection site inflammation [Not Recovered/Not Resolved]
  - Gait inability [Not Recovered/Not Resolved]
  - Speech disorder [Not Recovered/Not Resolved]
  - Mobility decreased [Not Recovered/Not Resolved]
  - Pyrexia [Not Recovered/Not Resolved]
  - Chills [Not Recovered/Not Resolved]
